FAERS Safety Report 16148676 (Version 1)
Quarter: 2019Q2

REPORT INFORMATION
  Report Type: Spontaneous
  Country: CN (occurrence: CN)
  Receive Date: 20190402
  Receipt Date: 20190402
  Transmission Date: 20190711
  Serious: Yes (Hospitalization)
  Sender: FDA-Public Use
  Company Number: CN-ELI_LILLY_AND_COMPANY-CN201903012314

PATIENT
  Sex: Female
  Weight: 50 kg

DRUGS (1)
  1. INSULIN LISPRO [Suspect]
     Active Substance: INSULIN LISPRO
     Indication: BLOOD GLUCOSE DECREASED
     Dosage: 6 [IU], TID
     Route: 058
     Dates: start: 20190316, end: 20190318

REACTIONS (7)
  - Blood glucose increased [Recovering/Resolving]
  - Vomiting [Recovering/Resolving]
  - Rash [Recovered/Resolved]
  - Drug hypersensitivity [Recovering/Resolving]
  - Flushing [Recovering/Resolving]
  - Rash [Recovered/Resolved]
  - Nausea [Recovering/Resolving]

NARRATIVE: CASE EVENT DATE: 20190317
